FAERS Safety Report 6129146-7 (Version None)
Quarter: 2009Q1

REPORT INFORMATION
  Report Type: 
  Country: None (occurrence: None)
  Receive Date: 20090320
  Receipt Date: 20090310
  Transmission Date: 20090719
  Serious: No
  Sender: FDA-Public Use
  Company Number: 2008-185491-NL

PATIENT
  Sex: Male

DRUGS (2)
  1. MIRTAZAPINE [Suspect]
     Indication: DEPRESSION
     Dosage: DF
     Dates: start: 20080915, end: 20081015
  2. ALCOHOL [Suspect]

REACTIONS (4)
  - AGGRESSION [None]
  - ALCOHOL USE [None]
  - NIGHTMARE [None]
  - SUICIDAL IDEATION [None]
